FAERS Safety Report 9397187 (Version 2)
Quarter: 2013Q3

REPORT INFORMATION
  Report Type: Spontaneous
  Country: US (occurrence: US)
  Receive Date: 20130712
  Receipt Date: 20130806
  Transmission Date: 20140515
  Serious: Yes (Life-Threatening, Hospitalization, Other)
  Sender: FDA-Public Use
  Company Number: PHEH2013US014662

PATIENT
  Age: 14 Year
  Sex: Female

DRUGS (19)
  1. TRILEPTAL [Suspect]
     Indication: CONVULSION
     Dosage: 300 MG, (AT BEDTIME)
     Route: 048
     Dates: start: 20130214
  2. TRILEPTAL [Suspect]
     Dosage: 600 MG, (IN MORNING)
     Route: 048
     Dates: start: 20130501
  3. TRILEPTAL [Suspect]
     Dosage: 600 MG IN MORNING AND 900 MG IN EVENING
     Route: 048
  4. ATIVAN [Suspect]
     Indication: ANXIETY
     Dosage: 2 MG, UNK
     Route: 048
  5. ONFI [Suspect]
     Indication: CONVULSION
     Dosage: 10 DF, BID
     Route: 048
  6. ONFI [Suspect]
     Dosage: 5 MG, UNK
     Route: 048
  7. ONFI [Suspect]
     Dosage: 10 MG, UNK
     Route: 048
  8. ONFI [Suspect]
     Dosage: 5 MG, BID
     Route: 048
  9. ONFI [Suspect]
     Dosage: 5 MG, UNK
     Route: 048
  10. PHENOBARBITAL [Suspect]
     Indication: CONVULSION
     Dosage: 120 MG, DAILY (NIGHT AT BEDTIME)
     Route: 048
  11. KLONOPIN [Concomitant]
     Dosage: 0.062 MG, BID
     Route: 048
  12. VIMPAT [Concomitant]
     Dosage: 50 MG, (MORNING)
     Route: 048
  13. VIMPAT [Concomitant]
     Dosage: 150 MG, (MORNING)
     Route: 048
  14. CELEXA [Concomitant]
     Indication: DEPRESSION
     Dosage: 20 MG, DAILY
     Route: 048
  15. CELEXA [Concomitant]
     Dosage: 30 MG, UNK
     Route: 048
  16. VERSED [Concomitant]
     Indication: CONVULSION
     Dosage: 1.6 ML, (0.8 ML PER NORTRIL/DAILY AS NEEDED)
     Route: 045
     Dates: start: 20130214
  17. BENADRYL /OLD FORM/ [Concomitant]
     Indication: PRURITUS
     Dosage: 25 MG, PRN (AT NIGHT)
     Route: 048
  18. ALLEGRA [Concomitant]
     Dosage: 180 MBQ
     Route: 046
  19. HYDROCORTISONE [Concomitant]
     Dosage: 1 % 2 IN 1 D
     Route: 061

REACTIONS (25)
  - Suicidal behaviour [Recovering/Resolving]
  - Musculoskeletal stiffness [Unknown]
  - Dry skin [Recovered/Resolved]
  - Dyskinesia [Unknown]
  - Eyelid disorder [Unknown]
  - Screaming [Unknown]
  - Blood pressure decreased [Unknown]
  - Heart rate increased [Unknown]
  - Oropharyngeal pain [Unknown]
  - Neck pain [Unknown]
  - Tenderness [Unknown]
  - Panic attack [Unknown]
  - Ocular hyperaemia [Unknown]
  - Pharyngitis [Recovering/Resolving]
  - Folliculitis [Unknown]
  - Lethargy [Unknown]
  - Pruritus [Recovering/Resolving]
  - Lymphadenopathy [Recovering/Resolving]
  - Rash erythematous [Recovered/Resolved]
  - Depression [Recovering/Resolving]
  - Dizziness [Unknown]
  - Dyspnoea [Unknown]
  - Somnolence [Unknown]
  - Anxiety [Recovering/Resolving]
  - Convulsion [Recovering/Resolving]
